FAERS Safety Report 8167773-6 (Version None)
Quarter: 2012Q1

REPORT INFORMATION
  Report Type: 
  Country: None (occurrence: None)
  Receive Date: 20120227
  Receipt Date: 20120217
  Transmission Date: 20120608
  Serious: Yes (Hospitalization, Other)
  Sender: FDA-Public Use
  Company Number: IE-ROCHE-GNE323166

PATIENT
  Sex: Male

DRUGS (6)
  1. INSPRA [Concomitant]
     Indication: ASTHMA
  2. IVABRADINE [Concomitant]
     Indication: ARRHYTHMIA
  3. PERINDOPRIL ERBUMINE [Concomitant]
     Indication: HYPERTENSION
  4. SYMBICORT [Concomitant]
     Indication: ASTHMA
  5. RANIBIZUMAB [Suspect]
     Indication: AGE-RELATED MACULAR DEGENERATION
     Dosage: 50 A?L, UNK
     Route: 050
     Dates: start: 20090714, end: 20090825
  6. VENTOLIN [Concomitant]
     Indication: ASTHMA

REACTIONS (3)
  - RETINAL PIGMENT EPITHELIAL TEAR [None]
  - VISUAL ACUITY REDUCED [None]
  - RETINAL HAEMORRHAGE [None]
